FAERS Safety Report 19211609 (Version 1)
Quarter: 2021Q2

REPORT INFORMATION
  Report Type: Spontaneous
  Country: US (occurrence: US)
  Receive Date: 20210504
  Receipt Date: 20210504
  Transmission Date: 20210717
  Serious: Yes (Death, Other)
  Sender: FDA-Public Use
  Company Number: US-PURDUE-USA-2020-0210934

PATIENT
  Sex: Male

DRUGS (2)
  1. OXY IR [Suspect]
     Active Substance: OXYCODONE HYDROCHLORIDE
     Indication: INJURY
     Dosage: UNKNOWN
     Route: 065
  2. OXYCONTIN [Suspect]
     Active Substance: OXYCODONE HYDROCHLORIDE
     Indication: INJURY
     Dosage: 40 MG, UNK
     Route: 048

REACTIONS (3)
  - Drug withdrawal syndrome [Unknown]
  - Completed suicide [Fatal]
  - Depression [Unknown]
